FAERS Safety Report 24792681 (Version 1)
Quarter: 2024Q4

REPORT INFORMATION
  Report Type: Spontaneous
  Country: US (occurrence: US)
  Receive Date: 20241231
  Receipt Date: 20241231
  Transmission Date: 20250114
  Serious: No
  Sender: GLAXOSMITHKLINE
  Company Number: US-GSK-US2024GSK163707

PATIENT
  Sex: Female

DRUGS (1)
  1. WELLBUTRIN [Suspect]
     Active Substance: BUPROPION HYDROCHLORIDE
     Indication: Depression
     Dosage: 1 DF, 1D
     Route: 048
     Dates: start: 2017, end: 2024

REACTIONS (5)
  - Dyspnoea [Unknown]
  - Drug interaction [Unknown]
  - Nasopharyngitis [Unknown]
  - Cough [Unknown]
  - Hypersensitivity [Unknown]
